FAERS Safety Report 5634984-0 (Version None)
Quarter: 2008Q1

REPORT INFORMATION
  Report Type: 
  Country: None (occurrence: None)
  Receive Date: 20080222
  Receipt Date: 20080214
  Transmission Date: 20080703
  Serious: Yes (Hospitalization)
  Sender: FDA-Public Use
  Company Number: PHMT2008CA00479

PATIENT
  Age: 63 Year
  Sex: Female

DRUGS (1)
  1. PAMIDRONATE DISODIUM [Suspect]
     Indication: BREAST CANCER
     Dosage: 90 MG EVERY 28 DAYS
     Route: 042
     Dates: start: 20071206

REACTIONS (2)
  - CELLULITIS [None]
  - EXTRAVASATION [None]
